FAERS Safety Report 6441545-2 (Version None)
Quarter: 2009Q4

REPORT INFORMATION
  Report Type: 
  Country: None (occurrence: None)
  Receive Date: 20091112
  Receipt Date: 20091028
  Transmission Date: 20100525
  Serious: Yes (Other)
  Sender: FDA-Public Use
  Company Number: 020574503A

PATIENT
  Sex: Male

DRUGS (3)
  1. ULTRA BRITE ADVANCED WHITENING [Suspect]
     Dosage: 2 USES/ORAL
     Route: 048
     Dates: start: 20091026, end: 20091027
  2. BABY ASPIRIN [Concomitant]
  3. VITAMINS [Concomitant]

REACTIONS (2)
  - BLOOD PRESSURE INCREASED [None]
  - DRUG HYPERSENSITIVITY [None]
